FAERS Safety Report 5937809-9 (Version None)
Quarter: 2008Q4

REPORT INFORMATION
  Report Type: 
  Country: None (occurrence: None)
  Receive Date: 20081031
  Receipt Date: 20081024
  Transmission Date: 20090506
  Serious: Yes (Other)
  Sender: FDA-Public Use
  Company Number: IT-AVENTIS-200820138GDDC

PATIENT
  Age: 11 Year
  Sex: Male

DRUGS (7)
  1. HYDROCORTISONE [Suspect]
     Indication: CHEMOTHERAPY
     Dosage: DOSE: UNK
     Dates: start: 20050101
  2. VINCRISTINE [Concomitant]
     Indication: GLIOMA
     Dates: start: 20050101
  3. CARBOPLATIN [Concomitant]
     Indication: GLIOMA
     Dates: start: 20050101
  4. CHLORPHENAMINE [Concomitant]
     Dates: start: 20050101
  5. ONDANSETRON [Concomitant]
     Dates: start: 20050101
  6. KETOROLAC TROMETHAMINE [Concomitant]
     Dates: start: 20050101
  7. SULFAMETOXAZOL [Concomitant]
     Dates: start: 20050101

REACTIONS (1)
  - HAEMOLYTIC ANAEMIA [None]
